FAERS Safety Report 13395469 (Version 1)
Quarter: 2017Q2

REPORT INFORMATION
  Report Type: Report from Study
  Country: None (occurrence: BR)
  Receive Date: 20170403
  Receipt Date: 20170403
  Transmission Date: 20170830
  Serious: Yes (Other)
  Sender: FDA-Public Use
  Company Number: BR-ABBVIE-17K-020-1928581-00

PATIENT
  Sex: Male
  Weight: 83 kg

DRUGS (2)
  1. HUMIRA [Suspect]
     Active Substance: ADALIMUMAB
     Indication: PSORIASIS
     Dosage: LOADING DOSE, WEEK 0
     Route: 058
     Dates: start: 20120907, end: 20120907
  2. HUMIRA [Suspect]
     Active Substance: ADALIMUMAB
     Dosage: MAINTENANCE DOSE
     Route: 058
     Dates: end: 201605

REACTIONS (8)
  - Fear [Unknown]
  - Panic attack [Recovering/Resolving]
  - Stress [Unknown]
  - Vision blurred [Unknown]
  - Psoriasis [Recovering/Resolving]
  - Feeling abnormal [Unknown]
  - Impaired driving ability [Unknown]
  - Paralysis [Unknown]
